FAERS Safety Report 8350166-6 (Version None)
Quarter: 2012Q2

REPORT INFORMATION
  Report Type: 
  Country: None (occurrence: None)
  Receive Date: 20120510
  Receipt Date: 20120501
  Transmission Date: 20120825
  Serious: Yes (Other)
  Sender: FDA-Public Use
  Company Number: US-JNJFOC-20120503836

PATIENT
  Sex: Female
  Weight: 64.86 kg

DRUGS (3)
  1. THYROID PREPARATION [Concomitant]
     Route: 065
  2. CYCLOBENZAPRINE [Suspect]
     Indication: FIBROMYALGIA
     Route: 048
     Dates: start: 20110101, end: 20110201
  3. LORAZEPAM [Suspect]
     Indication: FIBROMYALGIA
     Route: 048
     Dates: start: 20101201

REACTIONS (3)
  - GASTROINTESTINAL DISORDER [None]
  - URTICARIA [None]
  - WEIGHT DECREASED [None]
